FAERS Safety Report 18952148 (Version 2)
Quarter: 2021Q1

REPORT INFORMATION
  Report Type: Other
  Country: FR (occurrence: FR)
  Receive Date: 20210301
  Receipt Date: 20210317
  Transmission Date: 20210420
  Serious: Yes (Other)
  Sender: FDA-Public Use
  Company Number: FR-APOTEX-2021AP004428

PATIENT

DRUGS (1)
  1. DEROXAT [Suspect]
     Active Substance: PAROXETINE HYDROCHLORIDE
     Indication: DEPRESSION
     Dosage: 1 DF, QD
     Route: 064
     Dates: start: 2018, end: 20190604

REACTIONS (7)
  - Failure to thrive [Not Recovered/Not Resolved]
  - Macrosomia [Recovered/Resolved]
  - Motor developmental delay [Not Recovered/Not Resolved]
  - Magnetic resonance imaging brain abnormal [Unknown]
  - Foetal exposure during pregnancy [Unknown]
  - Hypotonia [Not Recovered/Not Resolved]
  - Congenital condyloma [Not Recovered/Not Resolved]

NARRATIVE: CASE EVENT DATE: 20190604
